FAERS Safety Report 7945991-7 (Version None)
Quarter: 2011Q4

REPORT INFORMATION
  Report Type: 
  Country: None (occurrence: None)
  Receive Date: 20111125
  Receipt Date: 20111115
  Transmission Date: 20120403
  Serious: Yes (Other)
  Sender: FDA-Public Use
  Company Number: 2011MA016710

PATIENT
  Age: 62 Year
  Sex: Female

DRUGS (5)
  1. ENALAPRIL MALEATE [Concomitant]
  2. PRAVASTATIN [Suspect]
     Dosage: 10 MG; 2X
     Dates: start: 20110701
  3. LOVASTATIN [Suspect]
     Dosage: 10 MG
  4. LIPITOR [Suspect]
     Indication: HYPERCHOLESTEROLAEMIA
     Dosage: 10 MG; PO
     Route: 048
     Dates: start: 20110927, end: 20111001
  5. ROSUVASTATIN [Concomitant]

REACTIONS (4)
  - ERYTHEMA [None]
  - DRUG HYPERSENSITIVITY [None]
  - FEELING HOT [None]
  - PARAESTHESIA ORAL [None]
